FAERS Safety Report 13927371 (Version 2)
Quarter: 2024Q1

REPORT INFORMATION
  Report Type: Spontaneous
  Country: DK (occurrence: DK)
  Receive Date: 20170831
  Receipt Date: 20240312
  Transmission Date: 20240410
  Serious: Yes (Hospitalization, Other)
  Sender: FDA-Public Use
  Company Number: None

PATIENT
  Age: 61 Year
  Sex: Female

DRUGS (6)
  1. KEYTRUDA [Suspect]
     Active Substance: PEMBROLIZUMAB
     Dosage: INJECTION EVERY 3RD (THIRD WEEK. 150 MG- AFTER 2 (TWO) TREATMENTS, 200 MG
     Route: 042
     Dates: start: 20170407, end: 20170705
  2. LEVOTHYROXINE SODIUM [Concomitant]
     Active Substance: LEVOTHYROXINE SODIUM
     Indication: Product used for unknown indication
  3. CITALOPRAM [Concomitant]
     Active Substance: CITALOPRAM HYDROBROMIDE
     Indication: Product used for unknown indication
     Route: 048
  4. FEXOFENADINE HYDROCHLORIDE [Concomitant]
     Active Substance: FEXOFENADINE HYDROCHLORIDE
     Indication: Product used for unknown indication
     Route: 048
  5. ACETAMINOPHEN [Concomitant]
     Active Substance: ACETAMINOPHEN
     Indication: Product used for unknown indication
  6. ZOPICLONE [Concomitant]
     Active Substance: ZOPICLONE
     Indication: Product used for unknown indication
     Route: 048

REACTIONS (20)
  - Consciousness fluctuating [Unknown]
  - Cardiac failure [Unknown]
  - Poor peripheral circulation [Unknown]
  - Disorientation [Unknown]
  - Confusional state [Unknown]
  - Infection [Unknown]
  - Sepsis [Unknown]
  - Adrenal insufficiency [Unknown]
  - Hypothyroidism [Unknown]
  - Myocarditis [Unknown]
  - Colitis [Not Recovered/Not Resolved]
  - Fatigue [Unknown]
  - Hypopituitarism [Unknown]
  - Hypophysitis [Not Recovered/Not Resolved]
  - Abscess [Unknown]
  - Quality of life decreased [Unknown]
  - Pleural effusion [Unknown]
  - Nausea [Unknown]
  - Arthralgia [Unknown]
  - Myalgia [Unknown]

NARRATIVE: CASE EVENT DATE: 20170401
